FAERS Safety Report 17290783 (Version 1)
Quarter: 2020Q1

REPORT INFORMATION
  Report Type: Spontaneous
  Country: GB (occurrence: GB)
  Receive Date: 20200121
  Receipt Date: 20200121
  Transmission Date: 20200409
  Serious: Yes (Other)
  Sender: FDA-Public Use
  Company Number: GB-TEVA-2020-GB-1170047

PATIENT
  Sex: Male

DRUGS (8)
  1. ACETYLSALICYLIC ACID [Concomitant]
     Active Substance: ASPIRIN
  2. ATORVASTATIN [Concomitant]
     Active Substance: ATORVASTATIN
  3. OMEPRAZOLE. [Concomitant]
     Active Substance: OMEPRAZOLE
  4. DULOXETINE. [Concomitant]
     Active Substance: DULOXETINE
  5. ENOXAPARIN [Concomitant]
     Active Substance: ENOXAPARIN
  6. ALLOPURINOL. [Concomitant]
     Active Substance: ALLOPURINOL
  7. LEVOFLOXACIN. [Suspect]
     Active Substance: LEVOFLOXACIN
     Indication: URINARY TRACT INFECTION
     Dosage: 500 MG
     Route: 048
     Dates: start: 20191215, end: 20191219
  8. BISOPROLOL [Concomitant]
     Active Substance: BISOPROLOL

REACTIONS (1)
  - Delirium [Unknown]
